FAERS Safety Report 6588755-1 (Version None)
Quarter: 2010Q1

REPORT INFORMATION
  Report Type: 
  Country: None (occurrence: None)
  Receive Date: 20100218
  Receipt Date: 20100212
  Transmission Date: 20100710
  Serious: Yes (Hospitalization)
  Sender: FDA-Public Use
  Company Number: US-GILEAD-2010-0027057

PATIENT
  Sex: Female
  Weight: 106.69 kg

DRUGS (14)
  1. LETAIRIS [Suspect]
     Indication: PULMONARY ARTERIAL HYPERTENSION
     Route: 048
     Dates: start: 20090412
  2. WARFARIN SODIUM [Concomitant]
  3. DIOVAN [Concomitant]
  4. ATENOLOL [Concomitant]
  5. POTASSIUM CHLORIDE [Concomitant]
  6. VITAMIN B-12 [Concomitant]
  7. FERROUS SULFATE TAB [Concomitant]
  8. GLIPIZIDE [Concomitant]
  9. JANUVIA [Concomitant]
  10. LEVOTHYROXINE SODIUM [Concomitant]
  11. METFORMIN HYDROCHLORIDE [Concomitant]
  12. CINNAMON [Concomitant]
  13. HYDROCODONE BITARTRATE [Concomitant]
  14. CHROMIUM [Concomitant]

REACTIONS (1)
  - CATHETERISATION CARDIAC [None]
